FAERS Safety Report 10112319 (Version 3)
Quarter: 2014Q2

REPORT INFORMATION
  Report Type: Spontaneous
  Country: CA (occurrence: CA)
  Receive Date: 20140425
  Receipt Date: 20140519
  Transmission Date: 20141212
  Serious: Yes (Other)
  Sender: FDA-Public Use
  Company Number: CA-009507513-1404CAN012252

PATIENT
  Sex: Male

DRUGS (3)
  1. VICTRELIS [Suspect]
     Indication: CHRONIC HEPATITIS C
     Dosage: 800 MG, TID
     Route: 048
  2. PEGASYS [Suspect]
     Indication: CHRONIC HEPATITIS C
     Dosage: 0.5 ML PRE-FILLED SYRINGE, 180 MICROGRAM, QW
     Route: 058
     Dates: start: 20140207, end: 2014
  3. COPEGUS [Suspect]
     Indication: CHRONIC HEPATITIS C
     Dosage: 35 TABLET/WEEK, 1000 MG, QD
     Route: 048
     Dates: start: 20140207, end: 2014

REACTIONS (9)
  - Memory impairment [Unknown]
  - Mental impairment [Unknown]
  - Decreased appetite [Unknown]
  - Apathy [Unknown]
  - Irritability [Unknown]
  - Dysgeusia [Unknown]
  - Headache [Unknown]
  - Nausea [Unknown]
  - Vomiting [Unknown]
